FAERS Safety Report 20651885 (Version 2)
Quarter: 2022Q2

REPORT INFORMATION
  Report Type: Spontaneous
  Country: CY (occurrence: CY)
  Receive Date: 20220330
  Receipt Date: 20220408
  Transmission Date: 20220721
  Serious: Yes (Death, Hospitalization)
  Sender: FDA-Public Use
  Company Number: CY-BAYER-2022A043942

PATIENT
  Age: 68 Year
  Sex: Male

DRUGS (1)
  1. RIVAROXABAN [Suspect]
     Active Substance: RIVAROXABAN
     Indication: Atrial fibrillation
     Dosage: 15 UNK
     Route: 048
     Dates: start: 20220301, end: 20220318

REACTIONS (4)
  - Myocardial infarction [Fatal]
  - Haemoptysis [Unknown]
  - Haemoglobin decreased [Unknown]
  - Haematemesis [Unknown]

NARRATIVE: CASE EVENT DATE: 20220321
